FAERS Safety Report 15010321 (Version 1)
Quarter: 2018Q2

REPORT INFORMATION
  Report Type: Spontaneous
  Country: US (occurrence: US)
  Receive Date: 20180614
  Receipt Date: 20180614
  Transmission Date: 20180711
  Serious: No
  Sender: FDA-Public Use
  Company Number: US-AUROBINDO-AUR-APU-2018-016721

PATIENT
  Age: 76 Year
  Sex: Male
  Weight: 77.11 kg

DRUGS (2)
  1. FLAVEDON [Concomitant]
     Indication: PRODUCT USED FOR UNKNOWN INDICATION
     Dosage: UNK
     Route: 065
  2. CIPROFLOXACIN TABLETS USP 500 MG [Suspect]
     Active Substance: CIPROFLOXACIN
     Indication: GASTROENTERITIS
     Dosage: 500 MILLIGRAM, TWO TIMES A DAY
     Route: 065
     Dates: start: 20180306, end: 20180316

REACTIONS (2)
  - Limb discomfort [Unknown]
  - Fall [Unknown]

NARRATIVE: CASE EVENT DATE: 20180315
